FAERS Safety Report 22106137 (Version 1)
Quarter: 2023Q1

REPORT INFORMATION
  Report Type: Spontaneous
  Country: US (occurrence: US)
  Receive Date: 20230317
  Receipt Date: 20230317
  Transmission Date: 20230417
  Serious: Yes (Death, Other)
  Sender: FDA-Public Use
  Company Number: US-SA-SAC20230314000423

PATIENT
  Age: 78 Year
  Sex: Female
  Weight: 56.2 kg

DRUGS (16)
  1. DUPIXENT [Suspect]
     Active Substance: DUPILUMAB
     Indication: Idiopathic pulmonary fibrosis
     Dosage: 200 MG, QOW
     Route: 058
     Dates: start: 202111
  2. MELATONIN [Concomitant]
     Active Substance: MELATONIN
     Dosage: UNK
  3. OFEV [Concomitant]
     Active Substance: NINTEDANIB
     Dosage: UNK
  4. ALBUTEROL SULFATE [Concomitant]
     Active Substance: ALBUTEROL SULFATE
     Dosage: UNK
  5. TRELEGY ELLIPTA [Concomitant]
     Active Substance: FLUTICASONE FUROATE\UMECLIDINIUM BROMIDE\VILANTEROL TRIFENATATE
     Dosage: TRELEGY ELLIPTA 100-62.5 BLST W/DEV
  6. ZINC [Concomitant]
     Active Substance: ZINC
     Dosage: ZINC-15 66 MG TABLET
  7. VITAMIN D2 [Concomitant]
     Active Substance: ERGOCALCIFEROL
  8. CALCIUM\CHOLECALCIFEROL [Concomitant]
     Active Substance: CALCIUM\CHOLECALCIFEROL
     Dosage: CALCIUM + D3 600MG-12.5 TABLET ER
  9. PREDNISONE [Concomitant]
     Active Substance: PREDNISONE
     Dosage: UNK
  10. OMEPRAZOLE\SODIUM BICARBONATE [Concomitant]
     Active Substance: OMEPRAZOLE\SODIUM BICARBONATE
     Dosage: UNK
  11. ZYRTEC [Concomitant]
     Active Substance: CETIRIZINE HYDROCHLORIDE
     Dosage: UNK
  12. FISH OIL [Concomitant]
     Active Substance: FISH OIL
     Dosage: FISH OIL 100-160 MG CAPSULE
  13. SIMVASTATIN [Concomitant]
     Active Substance: SIMVASTATIN
     Dosage: UNK
  14. LETROZOLE [Concomitant]
     Active Substance: LETROZOLE
     Dosage: UNK
  15. CELEXA [Concomitant]
     Active Substance: CITALOPRAM HYDROBROMIDE
     Dosage: UNK
  16. HYDROCHLOROTHIAZIDE\LOSARTAN [Concomitant]
     Active Substance: HYDROCHLOROTHIAZIDE\LOSARTAN
     Dosage: UNK

REACTIONS (2)
  - Death [Fatal]
  - Product use in unapproved indication [Unknown]

NARRATIVE: CASE EVENT DATE: 20211101
